FAERS Safety Report 19057891 (Version 1)
Quarter: 2021Q1

REPORT INFORMATION
  Report Type: Spontaneous
  Country: US (occurrence: US)
  Receive Date: 20210324
  Receipt Date: 20210324
  Transmission Date: 20210420
  Serious: Yes (Death, Other)
  Sender: FDA-Public Use
  Company Number: US-PURDUE-USA-2020-0233203

PATIENT
  Age: 42 Year
  Sex: Female
  Weight: 75.28 kg

DRUGS (3)
  1. HYDROCODONE BITARTRATE (SIMILAR TO NDA 206627) [Suspect]
     Active Substance: HYDROCODONE BITARTRATE
     Indication: PAIN
     Dosage: UNK, LOW DOSE
     Route: 048
  2. OXYCODONE HYDROCHLORIDE (SIMILAR TO NDA 22?272) [Suspect]
     Active Substance: OXYCODONE HYDROCHLORIDE
     Indication: PAIN
     Dosage: UNK
     Route: 048
     Dates: start: 2001
  3. OXYCONTIN [Suspect]
     Active Substance: OXYCODONE HYDROCHLORIDE
     Indication: PAIN
     Dosage: UNK, 180 TABLETS
     Route: 048
     Dates: start: 2001

REACTIONS (4)
  - Toxicity to various agents [Fatal]
  - Cyanosis [Unknown]
  - Drug dependence [Unknown]
  - Systemic lupus erythematosus [Fatal]

NARRATIVE: CASE EVENT DATE: 20020419
